FAERS Safety Report 12876377 (Version 2)
Quarter: 2016Q4

REPORT INFORMATION
  Report Type: Spontaneous
  Country: US (occurrence: US)
  Receive Date: 20161024
  Receipt Date: 20161201
  Transmission Date: 20170207
  Serious: Yes (Other)
  Sender: FDA-Public Use
  Company Number: US-BAYER-2016-203829

PATIENT
  Age: 57 Year
  Sex: Female
  Weight: 104.31 kg

DRUGS (1)
  1. EOVIST [Suspect]
     Active Substance: GADOXETATE DISODIUM
     Indication: NUCLEAR MAGNETIC RESONANCE IMAGING
     Dosage: 10 ML (CC), ONCE
     Route: 042
     Dates: start: 20161020

REACTIONS (4)
  - Erythema [Recovered/Resolved]
  - Dyspnoea [Recovering/Resolving]
  - Hyperhidrosis [Recovered/Resolved]
  - Chest pain [Recovering/Resolving]

NARRATIVE: CASE EVENT DATE: 20161020
